FAERS Safety Report 12745984 (Version 1)
Quarter: 2016Q3

REPORT INFORMATION
  Report Type: Spontaneous
  Country: US (occurrence: US)
  Receive Date: 20160909
  Receipt Date: 20160909
  Transmission Date: 20161109
  Serious: No
  Sender: FDA-Public Use
  Company Number: None

PATIENT
  Weight: 98.43 kg

DRUGS (8)
  1. MYCOPHENOLATE [Suspect]
     Active Substance: MYCOPHENOLIC ACID
     Indication: IMMUNOSUPPRESSION
     Route: 048
     Dates: start: 20160829
  2. COLACE [Concomitant]
     Active Substance: DOCUSATE SODIUM
  3. SIMVASTATIN. [Concomitant]
     Active Substance: SIMVASTATIN
  4. VALGANCYCLOVIR [Concomitant]
     Active Substance: VALGANCICLOVIR
  5. NOVOLOG [Concomitant]
     Active Substance: INSULIN ASPART
  6. MYCOPHENOLATE [Suspect]
     Active Substance: MYCOPHENOLIC ACID
     Indication: RENAL TRANSPLANT
     Route: 048
     Dates: start: 20160829
  7. PEPCID [Concomitant]
     Active Substance: FAMOTIDINE
  8. LANTUS [Concomitant]
     Active Substance: INSULIN GLARGINE

REACTIONS (2)
  - Blood glucose abnormal [None]
  - Sleep disorder [None]

NARRATIVE: CASE EVENT DATE: 20160829
